FAERS Safety Report 4532230-2 (Version None)
Quarter: 2004Q4

REPORT INFORMATION
  Report Type: 
  Country: None (occurrence: None)
  Receive Date: 20041217
  Receipt Date: 20041011
  Transmission Date: 20050328
  Serious: Yes (Hospitalization)
  Sender: FDA-Public Use
  Company Number: 2004CG02050

PATIENT
  Age: 46 Year
  Sex: Male
  Weight: 82 kg

DRUGS (5)
  1. NEXIUM [Suspect]
     Dosage: 40 MG DAILY PO
     Route: 048
     Dates: end: 20040817
  2. TAHOR [Suspect]
     Dosage: 40 MG DAILY PO
     Route: 048
     Dates: end: 20040817
  3. ZOLPIDEM TARTRATE [Suspect]
     Dosage: 10 MG DAILY PO
     Route: 048
     Dates: end: 20040817
  4. AMLODIPINE [Concomitant]
  5. KARDEGIC [Concomitant]

REACTIONS (3)
  - ABDOMINAL PAIN [None]
  - CYTOLYTIC HEPATITIS [None]
  - VOMITING [None]
